FAERS Safety Report 6258524-0 (Version None)
Quarter: 2009Q3

REPORT INFORMATION
  Report Type: 
  Country: None (occurrence: None)
  Receive Date: 20090707
  Receipt Date: 20090625
  Transmission Date: 20100115
  Serious: Yes (Hospitalization)
  Sender: FDA-Public Use
  Company Number: BR-BIOGENIDEC-2009BI020009

PATIENT
  Sex: Female

DRUGS (3)
  1. AVONEX [Suspect]
     Indication: MULTIPLE SCLEROSIS
     Route: 030
     Dates: start: 20070601, end: 20090612
  2. UNSPECIFIED MEDICINE [Concomitant]
     Indication: NERVOUS SYSTEM DISORDER
     Dates: start: 20070601
  3. UNSPECIFIED MEDICINE [Concomitant]
     Indication: DEPRESSION

REACTIONS (1)
  - GAIT DISTURBANCE [None]
